FAERS Safety Report 20152133 (Version 1)
Quarter: 2021Q4

REPORT INFORMATION
  Report Type: Spontaneous
  Country: US (occurrence: None)
  Receive Date: 20211205
  Receipt Date: 20211205
  Transmission Date: 20220303
  Serious: No
  Sender: FDA-Public Use
  Company Number: None

PATIENT
  Age: 63 Year
  Sex: Male
  Weight: 124.2 kg

DRUGS (17)
  1. IMCIVREE [Suspect]
     Active Substance: SETMELANOTIDE
     Indication: Weight decreased
     Dosage: OTHER QUANTITY : 1 INJECTION(S);?FREQUENCY : DAILY;?
     Route: 058
     Dates: start: 20211203, end: 20211203
  2. FEBUXOSTAT [Concomitant]
     Active Substance: FEBUXOSTAT
  3. LEVOTHYROXINE [Concomitant]
     Active Substance: LEVOTHYROXINE
  4. ROSUVASTATIN [Concomitant]
     Active Substance: ROSUVASTATIN
  5. PANTOPRAZOLE [Concomitant]
     Active Substance: PANTOPRAZOLE
  6. ZONISAMIDE [Concomitant]
     Active Substance: ZONISAMIDE
  7. ANASTROZOLE [Concomitant]
     Active Substance: ANASTROZOLE
  8. ELIQUIS [Concomitant]
     Active Substance: APIXABAN
  9. TART CHERRY [Concomitant]
  10. IRON BIGLYCINATE [Concomitant]
  11. BITTER MELON [Concomitant]
  12. VITAMIN D3 [Concomitant]
     Active Substance: CHOLECALCIFEROL
  13. CHELATE MAGANESE [Concomitant]
  14. FLINSTONE COMPLETE CHEWABLE VITAMINS [Concomitant]
  15. BIOTIN [Concomitant]
     Active Substance: BIOTIN
  16. VITAMIN B12 [Concomitant]
     Active Substance: CYANOCOBALAMIN
  17. TYLENOL [Concomitant]
     Active Substance: ACETAMINOPHEN

REACTIONS (7)
  - Nausea [None]
  - Spontaneous penile erection [None]
  - Abdominal pain [None]
  - Back pain [None]
  - Fatigue [None]
  - Muscle spasms [None]
  - Therapy cessation [None]

NARRATIVE: CASE EVENT DATE: 20211203
